FAERS Safety Report 19450205 (Version 5)
Quarter: 2021Q4

REPORT INFORMATION
  Report Type: Spontaneous
  Country: US (occurrence: US)
  Receive Date: 20210622
  Receipt Date: 20211129
  Transmission Date: 20220303
  Serious: Yes (Other)
  Sender: FDA-Public Use
  Company Number: US-PFIZER INC-2021706868

PATIENT
  Age: 78 Year
  Sex: Female

DRUGS (1)
  1. XELJANZ XR [Suspect]
     Active Substance: TOFACITINIB CITRATE
     Dosage: 11 MG, 1X/DAY
     Route: 048

REACTIONS (19)
  - Haemorrhage [Unknown]
  - Venous thrombosis [Unknown]
  - Depressed mood [Unknown]
  - Foot fracture [Unknown]
  - Pain [Unknown]
  - Malaise [Unknown]
  - Insomnia [Unknown]
  - Arthralgia [Unknown]
  - Fall [Unknown]
  - Swelling [Unknown]
  - Injury [Unknown]
  - Haematoma [Unknown]
  - Eye contusion [Unknown]
  - Anxiety [Unknown]
  - Fatigue [Unknown]
  - Headache [Unknown]
  - Contusion [Unknown]
  - Concussion [Unknown]
  - Weight increased [Unknown]
